FAERS Safety Report 5006788-3 (Version None)
Quarter: 2006Q2

REPORT INFORMATION
  Report Type: 
  Country: None (occurrence: None)
  Receive Date: 20060516
  Receipt Date: 20060504
  Transmission Date: 20061013
  Serious: Yes (Disabling, Other)
  Sender: FDA-Public Use
  Company Number: 2006051645

PATIENT
  Age: 74 Year
  Sex: Male

DRUGS (1)
  1. XALATAN [Suspect]
     Indication: GLAUCOMA
     Dosage: DAILY
     Dates: start: 20010501, end: 20060320

REACTIONS (3)
  - COUGH [None]
  - EYE IRRITATION [None]
  - THROAT IRRITATION [None]
